FAERS Safety Report 8462949-2 (Version None)
Quarter: 2012Q2

REPORT INFORMATION
  Report Type: 
  Country: None (occurrence: None)
  Receive Date: 20120625
  Receipt Date: 20120615
  Transmission Date: 20120825
  Serious: Yes (Life-Threatening, Hospitalization, Disabling, Other)
  Sender: FDA-Public Use
  Company Number: GB-TEVA-343134ISR

PATIENT
  Age: 75 Year
  Sex: Female

DRUGS (4)
  1. STATIN NOS [Concomitant]
  2. BENDROFLUMETHIAZIDE [Concomitant]
  3. NITROFURANTOIN [Suspect]
     Indication: URINARY TRACT INFECTION
     Route: 048
     Dates: start: 20110401, end: 20120528
  4. RAMIPRIL [Concomitant]

REACTIONS (6)
  - COAGULOPATHY [None]
  - JAUNDICE CHOLESTATIC [None]
  - HEPATIC FAILURE [None]
  - ENCEPHALOPATHY [None]
  - HEPATIC NECROSIS [None]
  - HEPATIC FIBROSIS [None]
